FAERS Safety Report 22102991 (Version 1)
Quarter: 2023Q1

REPORT INFORMATION
  Report Type: Spontaneous
  Country: US (occurrence: None)
  Receive Date: 20230316
  Receipt Date: 20230316
  Transmission Date: 20230417
  Serious: No
  Sender: FDA-Public Use
  Company Number: 2023A006074

PATIENT
  Age: 24854 Day
  Sex: Female
  Weight: 64.4 kg

DRUGS (3)
  1. SYMBICORT [Suspect]
     Active Substance: BUDESONIDE\FORMOTEROL FUMARATE DIHYDRATE
     Indication: Asthma
     Dosage: 2 PUFFS TWICE A DAY160.0UG UNKNOWN
     Route: 055
     Dates: start: 20230109
  2. SYMBICORT [Suspect]
     Active Substance: BUDESONIDE\FORMOTEROL FUMARATE DIHYDRATE
     Indication: Asthma
     Dosage: TWO TIMES A DAY, 2 PUFFS160.0UG UNKNOWN
     Route: 055
     Dates: start: 20230110, end: 20230124
  3. SYMBICORT [Suspect]
     Active Substance: BUDESONIDE\FORMOTEROL FUMARATE DIHYDRATE
     Indication: Asthma
     Dosage: 2 PUFFS TWICE A DAY160.0UG UNKNOWN
     Route: 055
     Dates: start: 20230124

REACTIONS (6)
  - Incorrect dose administered by device [Recovered/Resolved with Sequelae]
  - Oropharyngeal pain [Unknown]
  - Dysphonia [Unknown]
  - Product dispensing error [Not Recovered/Not Resolved]
  - Device breakage [Unknown]
  - Device malfunction [Unknown]

NARRATIVE: CASE EVENT DATE: 20230109
